FAERS Safety Report 6966870-8 (Version None)
Quarter: 2010Q3

REPORT INFORMATION
  Report Type: 
  Country: None (occurrence: None)
  Receive Date: 20100906
  Receipt Date: 20100827
  Transmission Date: 20110219
  Serious: Yes (Other)
  Sender: FDA-Public Use
  Company Number: PHHY2010US48548

PATIENT
  Sex: Female

DRUGS (6)
  1. EXTAVIA [Suspect]
     Indication: MULTIPLE SCLEROSIS
     Dosage: 0.0625 QOD
     Route: 058
     Dates: start: 20100716
  2. EXTAVIA [Suspect]
     Dosage: 0.0625 QOD
     Route: 058
     Dates: start: 20100718
  3. EXTAVIA [Suspect]
     Dosage: 0.0625 QOD
     Route: 058
     Dates: start: 20100720
  4. ALEVE (CAPLET) [Concomitant]
  5. IBUPROFEN [Concomitant]
  6. ACETAMINOPHEN [Concomitant]
     Dosage: UNK

REACTIONS (4)
  - FATIGUE [None]
  - HEADACHE [None]
  - IRITIS [None]
  - MULTIPLE SCLEROSIS RELAPSE [None]
